FAERS Safety Report 9552420 (Version 1)
Quarter: 2013Q3

REPORT INFORMATION
  Report Type: Spontaneous
  Country: US (occurrence: None)
  Receive Date: 20130924
  Receipt Date: 20130924
  Transmission Date: 20140515
  Serious: Yes (Hospitalization)
  Sender: FDA-Public Use
  Company Number: None

PATIENT
  Age: 51 Year
  Sex: Female
  Weight: 86 kg

DRUGS (1)
  1. RIFAMPICIN [Suspect]
     Indication: WOUND INFECTION
     Route: 048
     Dates: start: 20130913, end: 20130920

REACTIONS (8)
  - Tremor [None]
  - Hyperhidrosis [None]
  - Feeling of body temperature change [None]
  - Thinking abnormal [None]
  - Retching [None]
  - Vomiting projectile [None]
  - Malaise [None]
  - Hypophagia [None]
